FAERS Safety Report 13510913 (Version 1)
Quarter: 2017Q2

REPORT INFORMATION
  Report Type: Spontaneous
  Country: US (occurrence: US)
  Receive Date: 20170503
  Receipt Date: 20170503
  Transmission Date: 20170830
  Serious: Yes (Disabling, Other)
  Sender: FDA-Public Use
  Company Number: US-PFIZER INC-2017188233

PATIENT
  Age: 62 Year
  Sex: Male
  Weight: 92.53 kg

DRUGS (1)
  1. VIAGRA [Suspect]
     Active Substance: SILDENAFIL CITRATE
     Indication: ERECTILE DYSFUNCTION
     Dosage: 50MG, TABLET WHEN NEEDED
     Route: 048

REACTIONS (1)
  - Hepatic cirrhosis [Unknown]
